FAERS Safety Report 17953522 (Version 1)
Quarter: 2020Q2

REPORT INFORMATION
  Report Type: Report from Study
  Country: GB (occurrence: GB)
  Receive Date: 20200628
  Receipt Date: 20200628
  Transmission Date: 20200714
  Serious: Yes (Other)
  Sender: FDA-Public Use
  Company Number: NVSC2020GB005977

PATIENT
  Age: 75 Year
  Sex: Female

DRUGS (1)
  1. SANDOSTATIN LAR DEPOT [Suspect]
     Active Substance: OCTREOTIDE ACETATE
     Indication: NEUROENDOCRINE TUMOUR
     Dosage: 30 MG, Q3W
     Route: 030
     Dates: start: 201705

REACTIONS (4)
  - Renal pain [Unknown]
  - Musculoskeletal pain [Not Recovered/Not Resolved]
  - Inappropriate schedule of product administration [Unknown]
  - Hepatic pain [Not Recovered/Not Resolved]

NARRATIVE: CASE EVENT DATE: 20200102
